FAERS Safety Report 9196558 (Version 4)
Quarter: 2013Q3

REPORT INFORMATION
  Report Type: Spontaneous
  Country: US (occurrence: US)
  Receive Date: 20130328
  Receipt Date: 20130717
  Transmission Date: 20140515
  Serious: Yes (Other)
  Sender: FDA-Public Use
  Company Number: US-PFIZER INC-2013098878

PATIENT
  Sex: Female

DRUGS (7)
  1. XANAX [Suspect]
     Indication: COMPLEX REGIONAL PAIN SYNDROME
     Dosage: UNK
  2. XANAX [Suspect]
     Indication: ANXIETY
  3. ALPRAZOLAM [Suspect]
     Indication: COMPLEX REGIONAL PAIN SYNDROME
     Dosage: 0.5 MG, AS NEEDED
     Route: 048
  4. ALPRAZOLAM [Suspect]
     Indication: ANXIETY
     Dosage: 0.5 MG, AS NEEDED
     Route: 048
     Dates: start: 20120110, end: 20120206
  5. ALPRAZOLAM [Suspect]
     Dosage: 0.5 MG, 3X/DAY (EVERY 8 HOURS)
     Route: 048
     Dates: start: 20120207, end: 20120426
  6. ALPRAZOLAM [Suspect]
     Dosage: 0.5 MG, TWO TABLETS AT BEDTIME
     Route: 048
     Dates: start: 20120427, end: 20120615
  7. ALPRAZOLAM [Suspect]
     Dosage: 0.5 MG, 2X/DAY
     Route: 048
     Dates: start: 20120616

REACTIONS (5)
  - Cerebrovascular accident [Unknown]
  - Amnesia [Not Recovered/Not Resolved]
  - Cardiac disorder [Unknown]
  - Insomnia [Unknown]
  - Off label use [Unknown]
